FAERS Safety Report 19663131 (Version 2)
Quarter: 2021Q3

REPORT INFORMATION
  Report Type: Spontaneous
  Country: US (occurrence: US)
  Receive Date: 20210805
  Receipt Date: 20210813
  Transmission Date: 20211014
  Serious: No
  Sender: FDA-Public Use
  Company Number: US-ORGANON-O2107USA000911

PATIENT
  Age: 33 Year
  Sex: Female

DRUGS (8)
  1. AMINOCAPROIC ACID. [Concomitant]
     Active Substance: AMINOCAPROIC ACID
  2. LEUPROLIDE ACETATE. [Concomitant]
     Active Substance: LEUPROLIDE ACETATE
  3. GANIRELIX ACETATE INJECTION [Suspect]
     Active Substance: GANIRELIX ACETATE
     Indication: INFERTILITY FEMALE
     Dosage: 250 MICROGRAM, DAILY
     Route: 058
     Dates: start: 20210617
  4. FOLLISTIM AQ [Suspect]
     Active Substance: FOLLITROPIN
     Indication: INFERTILITY FEMALE
     Dosage: 225 INTERNATIONAL UNIT, DAILY
     Route: 058
     Dates: start: 20210617
  5. MENOPUR [Concomitant]
     Active Substance: FOLLITROPIN\LUTEINIZING HORMONE
  6. HCG [Concomitant]
     Active Substance: GONADOTROPHIN, CHORIONIC
  7. PROGESTERONE. [Concomitant]
     Active Substance: PROGESTERONE
  8. ESTRADIOL. [Concomitant]
     Active Substance: ESTRADIOL

REACTIONS (1)
  - Urticaria [Unknown]

NARRATIVE: CASE EVENT DATE: 202107
